FAERS Safety Report 12523384 (Version 1)
Quarter: 2016Q3

REPORT INFORMATION
  Report Type: Spontaneous
  Country: US (occurrence: US)
  Receive Date: 20160702
  Receipt Date: 20160702
  Transmission Date: 20161109
  Serious: No
  Sender: FDA-Public Use
  Company Number: US-TEVA-672882USA

PATIENT
  Age: 54 Year
  Sex: Female

DRUGS (7)
  1. COPAXONE [Suspect]
     Active Substance: GLATIRAMER ACETATE
     Indication: MULTIPLE SCLEROSIS
     Route: 058
  2. LYRICA [Concomitant]
     Active Substance: PREGABALIN
  3. CITALOPRAM [Concomitant]
     Active Substance: CITALOPRAM HYDROBROMIDE
  4. VITAMIN D [Concomitant]
     Active Substance: CHOLECALCIFEROL
  5. AMITRIPTYLINE [Concomitant]
     Active Substance: AMITRIPTYLINE
  6. AMANTADINE [Concomitant]
     Active Substance: AMANTADINE
  7. LISINOPRIL. [Concomitant]
     Active Substance: LISINOPRIL

REACTIONS (1)
  - Depression [Recovering/Resolving]

NARRATIVE: CASE EVENT DATE: 201605
